FAERS Safety Report 10613019 (Version 2)
Quarter: 2015Q1

REPORT INFORMATION
  Report Type: Spontaneous
  Country: FR (occurrence: FR)
  Receive Date: 20141127
  Receipt Date: 20150201
  Transmission Date: 20150720
  Serious: Yes (Other)
  Sender: FDA-Public Use
  Company Number: PHHY2014FR153771

PATIENT
  Sex: Male

DRUGS (2)
  1. ACLASTA [Suspect]
     Active Substance: ZOLEDRONIC ACID
     Indication: COMPLEX REGIONAL PAIN SYNDROME
     Dosage: UNK
     Route: 042
     Dates: start: 2009
  2. ACLASTA [Suspect]
     Active Substance: ZOLEDRONIC ACID
     Dosage: UNK
     Route: 042
     Dates: start: 2010

REACTIONS (3)
  - Product use issue [Unknown]
  - Portal vein thrombosis [Unknown]
  - Oesophageal varices haemorrhage [Recovered/Resolved]
